FAERS Safety Report 7055497-8 (Version None)
Quarter: 2010Q4

REPORT INFORMATION
  Report Type: 
  Country: None (occurrence: None)
  Receive Date: 20101019
  Receipt Date: 20101019
  Transmission Date: 20110411
  Serious: Yes (Hospitalization)
  Sender: FDA-Public Use
  Company Number: None

PATIENT
  Age: 35 Year
  Sex: Male
  Weight: 90 kg

DRUGS (2)
  1. CEFAZOLIN [Suspect]
     Indication: INFECTION PROPHYLAXIS
     Dosage: 1 GM ONCE IV
     Route: 042
     Dates: start: 20100909, end: 20100909
  2. IMMUNE GLOBULIN NOS [Suspect]
     Indication: RADICULOPATHY
     Dosage: 30 GM EVERY DAY IV
     Route: 042
     Dates: start: 20100823, end: 20100827

REACTIONS (10)
  - BLOOD CREATININE INCREASED [None]
  - BLOOD UREA INCREASED [None]
  - CHILLS [None]
  - HEPATIC ENZYME INCREASED [None]
  - PRURITUS [None]
  - PURPURA [None]
  - PYREXIA [None]
  - RASH [None]
  - TACHYCARDIA [None]
  - TRANSAMINASES INCREASED [None]
